FAERS Safety Report 8925985 (Version 1)
Quarter: 2012Q4

REPORT INFORMATION
  Report Type: 
  Country: CA (occurrence: CA)
  Receive Date: 20121126
  Receipt Date: 20121126
  Transmission Date: 20130627
  Serious: Yes (Other)
  Sender: FDA-Public Use
  Company Number: CA-ASTRAZENECA-2012SE86215

PATIENT
  Age: 73 Year
  Sex: Male
  Weight: 95.3 kg

DRUGS (8)
  1. SEROQUEL XR [Suspect]
     Route: 048
  2. AMLODIPINE [Concomitant]
     Route: 065
  3. ATACAND [Concomitant]
     Route: 065
  4. ATORVASTATIN CALCIUM [Concomitant]
     Route: 065
  5. EZETROL [Concomitant]
     Route: 065
  6. HUMULIN N [Concomitant]
     Dosage: 100 UNIT/ML SUSPENSION SUBCUTANEOUS
     Route: 065
  7. METOPROLOL [Concomitant]
     Route: 065
  8. PANTOPRAZOLE [Concomitant]
     Route: 065

REACTIONS (2)
  - Hallucination [Recovered/Resolved]
  - Dizziness [Recovered/Resolved]
